FAERS Safety Report 6839205-9 (Version None)
Quarter: 2010Q3

REPORT INFORMATION
  Report Type: 
  Country: None (occurrence: None)
  Receive Date: 20100709
  Receipt Date: 20100630
  Transmission Date: 20110219
  Serious: Yes (Hospitalization)
  Sender: FDA-Public Use
  Company Number: 632073

PATIENT
  Age: 67 Year
  Sex: Female

DRUGS (1)
  1. VANCOMYCIN HYDROCHLORIDE [Suspect]
     Indication: STAPHYLOCOCCAL INFECTION

REACTIONS (3)
  - ENTEROCOCCAL INFECTION [None]
  - PATHOGEN RESISTANCE [None]
  - RENAL FAILURE ACUTE [None]
